FAERS Safety Report 7826272-9 (Version None)
Quarter: 2011Q4

REPORT INFORMATION
  Report Type: 
  Country: None (occurrence: None)
  Receive Date: 20111020
  Receipt Date: 20111011
  Transmission Date: 20120403
  Serious: No
  Sender: FDA-Public Use
  Company Number: US-BIOGENIDEC-2011BI031910

PATIENT
  Sex: Female

DRUGS (2)
  1. TYSABRI [Suspect]
     Route: 042
     Dates: start: 20110901
  2. TYSABRI [Suspect]
     Indication: MULTIPLE SCLEROSIS
     Route: 042
     Dates: start: 20100616, end: 20110101

REACTIONS (8)
  - FATIGUE [None]
  - MOBILITY DECREASED [None]
  - DECREASED APPETITE [None]
  - INSOMNIA [None]
  - LOSS OF CONTROL OF LEGS [None]
  - DYSPHAGIA [None]
  - CONSTIPATION [None]
  - ARTHRALGIA [None]
